FAERS Safety Report 18956340 (Version 2)
Quarter: 2021Q1

REPORT INFORMATION
  Report Type: Spontaneous
  Country: DE (occurrence: DE)
  Receive Date: 20210302
  Receipt Date: 20210312
  Transmission Date: 20210420
  Serious: Yes (Other)
  Sender: FDA-Public Use
  Company Number: DE-REGENERON PHARMACEUTICALS, INC.-2021-29316

PATIENT

DRUGS (12)
  1. EYLEA [Suspect]
     Active Substance: AFLIBERCEPT
     Indication: NEOVASCULAR AGE-RELATED MACULAR DEGENERATION
     Dosage: LEFT EYE
     Dates: start: 2017
  2. EYLEA [Suspect]
     Active Substance: AFLIBERCEPT
     Dosage: LEFT OR RIGHT EYE, ONCE
     Dates: start: 202010, end: 202010
  3. EYLEA [Suspect]
     Active Substance: AFLIBERCEPT
     Dosage: ONE EYE
     Dates: start: 20210217, end: 20210217
  4. EYLEA [Suspect]
     Active Substance: AFLIBERCEPT
     Dosage: LEFT OR RIGHT EYE
     Dates: start: 20210106, end: 20210106
  5. EYLEA [Suspect]
     Active Substance: AFLIBERCEPT
     Dosage: UNK
  6. EYLEA [Suspect]
     Active Substance: AFLIBERCEPT
     Dosage: LEFT OR RIGHT EYE, ONCE
     Dates: start: 202010, end: 202010
  7. EYLEA [Suspect]
     Active Substance: AFLIBERCEPT
     Dosage: LEFT OR RIGHT EYE
     Dates: start: 20210105, end: 20210105
  8. EYLEA [Suspect]
     Active Substance: AFLIBERCEPT
     Dosage: LEFT OR RIGHT EYE
     Dates: start: 20201111, end: 20201111
  9. EYLEA [Suspect]
     Active Substance: AFLIBERCEPT
     Dosage: LEFT OR RIGHT EYE
     Dates: start: 20201110, end: 20201110
  10. EYLEA [Suspect]
     Active Substance: AFLIBERCEPT
     Dosage: LEFT OR RIGHT EYE
     Dates: start: 20201208, end: 20201208
  11. EYLEA [Suspect]
     Active Substance: AFLIBERCEPT
     Dosage: LEFT OR RIGHT EYE
     Dates: start: 20201209, end: 20201209
  12. RANIBIZUMAB. [Concomitant]
     Active Substance: RANIBIZUMAB
     Indication: PRODUCT USED FOR UNKNOWN INDICATION

REACTIONS (18)
  - Arrhythmia [Unknown]
  - Fatigue [Unknown]
  - Fatigue [Recovered/Resolved]
  - Blood pressure fluctuation [Unknown]
  - Cardiac discomfort [Unknown]
  - Drug intolerance [Unknown]
  - Fatigue [Unknown]
  - Fatigue [Unknown]
  - Tachycardia [Unknown]
  - Tachycardia [Unknown]
  - Arrhythmia [Unknown]
  - Blood pressure fluctuation [Unknown]
  - Cardiac discomfort [Unknown]
  - Extrasystoles [Not Recovered/Not Resolved]
  - Dizziness [Unknown]
  - Malaise [Unknown]
  - Extrasystoles [Unknown]
  - Malaise [Unknown]

NARRATIVE: CASE EVENT DATE: 202011
